FAERS Safety Report 5165596-3 (Version None)
Quarter: 2006Q4

REPORT INFORMATION
  Report Type: 
  Country: None (occurrence: None)
  Receive Date: 20061206
  Receipt Date: 20061204
  Transmission Date: 20070319
  Serious: Yes (Hospitalization)
  Sender: FDA-Public Use
  Company Number: FR-GLAXOSMITHKLINE-B0449316A

PATIENT
  Age: 83 Year
  Sex: Female

DRUGS (4)
  1. CLAMOXYL [Suspect]
     Indication: ERYSIPELAS
     Dosage: 1G TWICE PER DAY
     Route: 048
     Dates: start: 20060829, end: 20060903
  2. DAFLON 500 MG [Suspect]
     Indication: CARDIOVASCULAR DISORDER
     Dosage: 1500MG PER DAY
     Route: 048
     Dates: start: 20060830, end: 20060903
  3. LOVENOX [Suspect]
     Dosage: 40MG PER DAY
     Route: 058
     Dates: start: 20060830, end: 20060906
  4. GARDENAL [Concomitant]
     Indication: EPILEPSY
     Route: 065

REACTIONS (13)
  - ACUTE GENERALISED EXANTHEMATOUS PUSTULOSIS [None]
  - BODY TEMPERATURE INCREASED [None]
  - EOSINOPHILIA [None]
  - GENERALISED ERYTHEMA [None]
  - INFLAMMATION [None]
  - LEUKOCYTOSIS [None]
  - PRURIGO [None]
  - RASH PUSTULAR [None]
  - RASH SCARLATINIFORM [None]
  - RENAL FAILURE [None]
  - SKIN INFLAMMATION [None]
  - SKIN OEDEMA [None]
  - TOXIC SKIN ERUPTION [None]
